FAERS Safety Report 7489430-1 (Version None)
Quarter: 2011Q2

REPORT INFORMATION
  Report Type: 
  Country: None (occurrence: None)
  Receive Date: 20110518
  Receipt Date: 20110513
  Transmission Date: 20111010
  Serious: Yes (Other)
  Sender: FDA-Public Use
  Company Number: US-MERCK-1105USA02543

PATIENT
  Age: 76 Year
  Sex: Male

DRUGS (1)
  1. FOSAMAX [Suspect]
     Route: 048
     Dates: start: 19970101, end: 20060101

REACTIONS (3)
  - FEMUR FRACTURE [None]
  - OSTEONECROSIS OF JAW [None]
  - INJURY [None]
